FAERS Safety Report 17559990 (Version 1)
Quarter: 2020Q1

REPORT INFORMATION
  Report Type: Spontaneous
  Country: US (occurrence: US)
  Receive Date: 20200311
  Receipt Date: 20200311
  Transmission Date: 20200409
  Serious: Yes (Hospitalization)
  Sender: FDA-Public Use
  Company Number: None

PATIENT
  Age: 90 Year
  Sex: Female

DRUGS (1)
  1. APOKYN [Suspect]
     Active Substance: APOMORPHINE HYDROCHLORIDE
     Indication: PARKINSON^S DISEASE
     Dosage: ?          OTHER STRENGTH:30 MG/3ML;?
     Route: 058
     Dates: start: 20170906

REACTIONS (2)
  - Cystitis [None]
  - Asthenia [None]

NARRATIVE: CASE EVENT DATE: 20200110
